FAERS Safety Report 13286355 (Version 2)
Quarter: 2017Q1

REPORT INFORMATION
  Report Type: Spontaneous
  Country: US (occurrence: US)
  Receive Date: 20170301
  Receipt Date: 20170322
  Transmission Date: 20170428
  Serious: No
  Sender: FDA-Public Use
  Company Number: US-PFIZER INC-2017089615

PATIENT
  Age: 65 Year
  Sex: Female
  Weight: 32 kg

DRUGS (1)
  1. LYRICA [Suspect]
     Active Substance: PREGABALIN
     Dosage: ONE IN THE MORNING AND ONE IN THE

REACTIONS (1)
  - Malaise [Unknown]
